FAERS Safety Report 6146559-8 (Version None)
Quarter: 2009Q2

REPORT INFORMATION
  Report Type: 
  Country: None (occurrence: None)
  Receive Date: 20090407
  Receipt Date: 20090401
  Transmission Date: 20091009
  Serious: Yes (Hospitalization)
  Sender: FDA-Public Use
  Company Number: US-MERCK-0904USA00238

PATIENT
  Sex: Male

DRUGS (4)
  1. ISENTRESS [Suspect]
     Indication: HIV INFECTION
     Route: 048
     Dates: start: 20080101
  2. PREZISTA [Suspect]
     Route: 065
  3. NORVIR [Suspect]
     Route: 065
  4. REYATAZ [Concomitant]
     Route: 065

REACTIONS (3)
  - ABDOMINAL DISCOMFORT [None]
  - BLOOD GLUCOSE DECREASED [None]
  - TREMOR [None]
